FAERS Safety Report 6807292-X (Version None)
Quarter: 2010Q2

REPORT INFORMATION
  Report Type: 
  Country: None (occurrence: None)
  Receive Date: 20100629
  Receipt Date: 20080910
  Transmission Date: 20101027
  Serious: No
  Sender: FDA-Public Use
  Company Number: US-PFIZER INC-2008070115

PATIENT
  Sex: Male
  Weight: 86.363 kg

DRUGS (5)
  1. VIAGRA [Suspect]
  2. VITAMINS [Concomitant]
  3. FOLIC ACID [Concomitant]
  4. ACETYLSALICYLIC ACID [Concomitant]
  5. ZINC [Concomitant]

REACTIONS (5)
  - FATIGUE [None]
  - PRURITUS [None]
  - RASH [None]
  - TINNITUS [None]
  - VISION BLURRED [None]
